FAERS Safety Report 10265412 (Version 1)
Quarter: 2014Q2

REPORT INFORMATION
  Report Type: Spontaneous
  Country: SE (occurrence: SE)
  Receive Date: 20140627
  Receipt Date: 20140627
  Transmission Date: 20141212
  Serious: Yes (Hospitalization)
  Sender: FDA-Public Use
  Company Number: SE-009507513-1406SWE013170

PATIENT
  Age: 47 Year
  Sex: Female

DRUGS (12)
  1. SIMVASTATIN [Suspect]
     Dosage: 100 MG, UNK
     Route: 048
  2. DUROFERON [Suspect]
     Dosage: 800 MG, UNK
  3. SELOKEN [Suspect]
     Dosage: 250 MG, UNK
  4. LEVAXIN [Suspect]
     Dosage: 500 MICROGRAM, UNK
  5. LAMOTRIGINE [Suspect]
     Dosage: 1500 MG, UNK
  6. TOPIMAX (TOPIRAMATE) [Suspect]
     Dosage: 500 MG, UNK
  7. LYRICA [Suspect]
     Dosage: UNK
  8. OLANZAPINE [Suspect]
     Dosage: 50 MG, UNK
  9. CLOMIPRAMINE HYDROCHLORIDE [Suspect]
     Dosage: 750 MG, UNK
  10. QUETIAPINE FUMARATE [Suspect]
     Dosage: 2 G, UNK
  11. XANOR [Suspect]
     Dosage: 10 MG, UNK
  12. ZOPICLONE [Suspect]
     Dosage: 300 MG, UNK

REACTIONS (6)
  - Poisoning [Unknown]
  - Hypotonia [Unknown]
  - Depressed level of consciousness [Unknown]
  - Incorrect dose administered [None]
  - Oxygen saturation decreased [None]
  - Unresponsive to stimuli [None]
